FAERS Safety Report 6157745-5 (Version None)
Quarter: 2009Q2

REPORT INFORMATION
  Report Type: 
  Country: None (occurrence: None)
  Receive Date: 20090416
  Receipt Date: 20090325
  Transmission Date: 20091009
  Serious: Yes (Death)
  Sender: FDA-Public Use
  Company Number: GB-MERCK-0903GBR00082

PATIENT
  Sex: Female

DRUGS (3)
  1. ISENTRESS [Suspect]
     Route: 048
  2. ETRAVIRINE [Concomitant]
     Route: 065
  3. KALETRA [Concomitant]
     Route: 065

REACTIONS (1)
  - STEVENS-JOHNSON SYNDROME [None]
